FAERS Safety Report 8386356-6 (Version None)
Quarter: 2012Q2

REPORT INFORMATION
  Report Type: 
  Country: None (occurrence: None)
  Receive Date: 20120525
  Receipt Date: 20120515
  Transmission Date: 20120825
  Serious: Yes (Hospitalization)
  Sender: FDA-Public Use
  Company Number: CA-JNJFOC-20120508163

PATIENT
  Sex: Male
  Weight: 91 kg

DRUGS (5)
  1. REMICADE [Suspect]
     Route: 042
     Dates: start: 20091001
  2. SCOPOLAMINE [Concomitant]
     Route: 065
  3. REMICADE [Suspect]
     Indication: CROHN'S DISEASE
     Route: 042
  4. TYLENOL W/ CODEINE NO. 3 [Concomitant]
     Route: 065
  5. REMICADE [Suspect]
     Route: 042
     Dates: start: 20120507

REACTIONS (4)
  - NAUSEA [None]
  - VOMITING [None]
  - NEPHROLITHIASIS [None]
  - INFUSION RELATED REACTION [None]
